FAERS Safety Report 8309199-8 (Version None)
Quarter: 2012Q2

REPORT INFORMATION
  Report Type: 
  Country: None (occurrence: None)
  Receive Date: 20120424
  Receipt Date: 20120419
  Transmission Date: 20120825
  Serious: Yes (Other)
  Sender: FDA-Public Use
  Company Number: PHFR2010GB00569

PATIENT
  Sex: Female

DRUGS (3)
  1. IRRADIATION [Concomitant]
     Dosage: UNK
  2. CLARITHROMYCIN [Interacting]
     Indication: STEM CELL TRANSPLANT
     Dosage: 250 MG, BID
     Route: 048
     Dates: start: 20030101
  3. IMATINIB MESYLATE [Suspect]
     Indication: ACUTE LYMPHOCYTIC LEUKAEMIA
     Dosage: 400 MG
     Route: 048

REACTIONS (2)
  - DRUG INTERACTION [None]
  - TEMPORAL LOBE EPILEPSY [None]
